FAERS Safety Report 9587384 (Version 1)
Quarter: 2013Q4

REPORT INFORMATION
  Report Type: Spontaneous
  Country: US (occurrence: None)
  Receive Date: 20131003
  Receipt Date: 20131003
  Transmission Date: 20140711
  Serious: Yes (Other)
  Sender: FDA-Public Use
  Company Number: None

PATIENT
  Age: 8 Year
  Sex: 0
  Weight: 27.22 kg

DRUGS (1)
  1. SINGULAR [Suspect]

REACTIONS (4)
  - Tearfulness [None]
  - Crying [None]
  - Fight in school [None]
  - Aggression [None]
